FAERS Safety Report 12137209 (Version 1)
Quarter: 2016Q1

REPORT INFORMATION
  Report Type: Spontaneous
  Country: US (occurrence: US)
  Receive Date: 20160302
  Receipt Date: 20160302
  Transmission Date: 20160526
  Serious: No
  Sender: FDA-Public Use
  Company Number: US-INSYS THERAPEUTICS, INC-INS201510-000456

PATIENT
  Age: 59 Year
  Sex: Female

DRUGS (1)
  1. SUBSYS [Suspect]
     Active Substance: FENTANYL
     Dates: start: 20150807, end: 20151006

REACTIONS (3)
  - Headache [Unknown]
  - Nausea [Unknown]
  - Vertigo [Unknown]

NARRATIVE: CASE EVENT DATE: 20150925
